FAERS Safety Report 21640560 (Version 1)
Quarter: 2022Q4

REPORT INFORMATION
  Report Type: Spontaneous
  Country: GB (occurrence: GB)
  Receive Date: 20221124
  Receipt Date: 20221124
  Transmission Date: 20230113
  Serious: Yes (Hospitalization)
  Sender: FDA-Public Use
  Company Number: GB-MHRA-MED-202211101550055650-JFYTG

PATIENT

DRUGS (2)
  1. PREDNISOLONE [Suspect]
     Active Substance: PREDNISOLONE
     Indication: Topical steroid withdrawal reaction
     Dosage: 15 MG, QD (15MG TABLET ONCE A DAY IN MORNING)
     Dates: start: 20220223, end: 20220228
  2. PREDNISOLONE [Suspect]
     Active Substance: PREDNISOLONE
     Indication: Eczema

REACTIONS (2)
  - Dermatitis atopic [Not Recovered/Not Resolved]
  - Medication error [Unknown]

NARRATIVE: CASE EVENT DATE: 20220301
